FAERS Safety Report 7928324-1 (Version None)
Quarter: 2011Q4

REPORT INFORMATION
  Report Type: 
  Country: None (occurrence: None)
  Receive Date: 20111118
  Receipt Date: 20111114
  Transmission Date: 20120403
  Serious: Yes (Other)
  Sender: FDA-Public Use
  Company Number: US-BAYER-2011-091749

PATIENT
  Age: 60 Year
  Sex: Female
  Weight: 61.678 kg

DRUGS (4)
  1. CLIMARA [Suspect]
     Indication: HYSTERECTOMY
     Dosage: 0375 MG, UNK
     Dates: start: 20110101, end: 20111003
  2. CLIMARA [Suspect]
     Indication: AUTONOMIC NERVOUS SYSTEM IMBALANCE
     Dosage: 0.375 MG, UNK
     Dates: start: 20000101
  3. LOSARTAN [Concomitant]
     Indication: HYPERTENSION
     Dosage: 50 MG, QD
  4. VIVELLE-DOT [Suspect]
     Indication: HYSTERECTOMY
     Dosage: 0.275 MG, Q2WK
     Dates: start: 20110101

REACTIONS (13)
  - UPPER-AIRWAY COUGH SYNDROME [None]
  - DRY THROAT [None]
  - ASTHMA [None]
  - INCREASED UPPER AIRWAY SECRETION [None]
  - HOT FLUSH [None]
  - UPPER RESPIRATORY TRACT INFLAMMATION [None]
  - APHAGIA [None]
  - NASAL DRYNESS [None]
  - NIGHTMARE [None]
  - DRY MOUTH [None]
  - COUGH [None]
  - APHONIA [None]
  - INSOMNIA [None]
